FAERS Safety Report 8617362-1 (Version None)
Quarter: 2012Q3

REPORT INFORMATION
  Report Type: 
  Country: None (occurrence: None)
  Receive Date: 20120823
  Receipt Date: 20120806
  Transmission Date: 20120928
  Serious: Yes (Hospitalization)
  Sender: FDA-Public Use
  Company Number: JP-009507513-1207JPN000103

PATIENT

DRUGS (35)
  1. ZOLINZA [Suspect]
     Indication: MYCOSIS FUNGOIDES
     Route: 048
     Dates: start: 20120217, end: 20120221
  2. SULFAMETHOXAZOLE AND TRIMETHOPRIM [Concomitant]
     Route: 048
  3. SLOW-K [Concomitant]
     Indication: CARDIAC FAILURE
     Route: 048
     Dates: start: 20120221, end: 20120316
  4. MAXIPIME [Concomitant]
     Route: 042
     Dates: start: 20120409, end: 20120415
  5. ZOLINZA [Suspect]
     Route: 048
     Dates: start: 20120309, end: 20120413
  6. ZOLINZA [Suspect]
     Route: 048
     Dates: start: 20120309, end: 20120413
  7. OMEPRAZOLE [Concomitant]
     Indication: MYCOSIS FUNGOIDES
     Route: 042
     Dates: start: 20120327, end: 20120404
  8. PLETAL [Concomitant]
     Route: 048
     Dates: start: 20120320
  9. [THERAPY UNSPECIFIED] [Concomitant]
     Indication: ILEUS
     Route: 048
     Dates: start: 20120320
  10. JANUVIA [Concomitant]
     Route: 048
  11. FIRSTCIN [Concomitant]
     Route: 042
     Dates: start: 20120216, end: 20120226
  12. FIRSTCIN [Concomitant]
     Route: 042
     Dates: start: 20120327, end: 20120408
  13. MAXIPIME [Concomitant]
     Indication: PNEUMONIA
     Route: 042
     Dates: start: 20120320, end: 20120326
  14. FUNGUARD [Concomitant]
     Indication: PROPHYLAXIS
     Route: 041
     Dates: start: 20120325, end: 20120328
  15. VERAPAMIL HCL [Concomitant]
     Indication: ARRHYTHMIA
     Route: 048
     Dates: start: 20120224, end: 20120408
  16. JANUVIA [Concomitant]
     Indication: DIABETES MELLITUS
     Route: 048
  17. ITRACONAZOLE [Concomitant]
     Indication: PROPHYLAXIS
     Route: 048
     Dates: end: 20120324
  18. CANDESARTAN CILEXETIL [Concomitant]
     Route: 048
  19. EPINASTINE HYDROCHLORIDE [Concomitant]
     Route: 048
  20. FIRSTCIN [Concomitant]
     Indication: PNEUMONIA
     Route: 042
     Dates: start: 20120216, end: 20120226
  21. ADONA [Concomitant]
     Indication: MYCOSIS FUNGOIDES
     Route: 051
     Dates: start: 20120322
  22. PLETAL [Concomitant]
     Indication: CEREBRAL INFARCTION
     Route: 048
  23. EPINASTINE HYDROCHLORIDE [Concomitant]
     Indication: MYCOSIS FUNGOIDES
     Route: 048
  24. ALDACTONE [Concomitant]
     Indication: CARDIAC FAILURE
     Route: 048
     Dates: start: 20120323, end: 20120326
  25. PLETAL [Concomitant]
     Route: 048
  26. PLETAL [Concomitant]
     Route: 048
     Dates: start: 20120320
  27. DAI-KENCHU-TO [Concomitant]
     Indication: ILEUS
     Route: 048
     Dates: start: 20120320
  28. SULFAMETHOXAZOLE AND TRIMETHOPRIM [Concomitant]
     Indication: PROPHYLAXIS
     Route: 048
  29. OMEPRAZOLE [Concomitant]
     Indication: GASTROOESOPHAGEAL REFLUX DISEASE
     Route: 048
     Dates: end: 20120330
  30. CANDESARTAN CILEXETIL [Concomitant]
     Indication: HYPERTENSION
     Route: 048
  31. FIRSTCIN [Concomitant]
     Route: 042
     Dates: start: 20120327, end: 20120409
  32. MAXIPIME [Concomitant]
     Route: 042
     Dates: start: 20120320, end: 20120326
  33. OMEPRAZOLE [Concomitant]
     Route: 042
     Dates: start: 20120327, end: 20120404
  34. MAXIPIME [Concomitant]
     Route: 042
     Dates: end: 20120416
  35. ZOSYN [Concomitant]
     Indication: PNEUMONIA
     Route: 042
     Dates: start: 20120307, end: 20120315

REACTIONS (3)
  - ILEUS [None]
  - DECREASED APPETITE [None]
  - ARRHYTHMIA [None]
